FAERS Safety Report 24996959 (Version 3)
Quarter: 2025Q2

REPORT INFORMATION
  Report Type: Report from Study
  Country: CO (occurrence: CO)
  Receive Date: 20250221
  Receipt Date: 20250513
  Transmission Date: 20250716
  Serious: Yes (Life-Threatening, Hospitalization)
  Sender: MYLAN
  Company Number: CO-MYLANLABS-2025M1015481

PATIENT
  Age: 0 Year
  Sex: Male
  Weight: 18.1 kg

DRUGS (24)
  1. CYSTAGON [Suspect]
     Active Substance: CYSTEAMINE BITARTRATE
     Indication: Cystinosis
     Dosage: 1800 MILLIGRAM, Q6H (IN SEQUENCE 3 MG - 2 MG - 3MG - 2 MG)
     Dates: start: 20160917
  2. CYSTAGON [Suspect]
     Active Substance: CYSTEAMINE BITARTRATE
     Dosage: 1800 MILLIGRAM, Q6H (IN SEQUENCE 3 MG - 2 MG - 3MG - 2 MG)
     Route: 048
     Dates: start: 20160917
  3. CYSTAGON [Suspect]
     Active Substance: CYSTEAMINE BITARTRATE
     Dosage: 1800 MILLIGRAM, Q6H (IN SEQUENCE 3 MG - 2 MG - 3MG - 2 MG)
     Route: 048
     Dates: start: 20160917
  4. CYSTAGON [Suspect]
     Active Substance: CYSTEAMINE BITARTRATE
     Dosage: 1800 MILLIGRAM, Q6H (IN SEQUENCE 3 MG - 2 MG - 3MG - 2 MG)
     Dates: start: 20160917
  5. CYSTEAMINE HYDROCHLORIDE [Suspect]
     Active Substance: CYSTEAMINE HYDROCHLORIDE
     Indication: Cystinosis
     Dosage: 4 GTT DROPS, Q6H (2 DROPS IN EACH EYE)
     Dates: start: 20140402
  6. CYSTEAMINE HYDROCHLORIDE [Suspect]
     Active Substance: CYSTEAMINE HYDROCHLORIDE
     Dosage: 4 GTT DROPS, Q6H (2 DROPS IN EACH EYE)
     Route: 047
     Dates: start: 20140402
  7. CYSTEAMINE HYDROCHLORIDE [Suspect]
     Active Substance: CYSTEAMINE HYDROCHLORIDE
     Dosage: 4 GTT DROPS, Q6H (2 DROPS IN EACH EYE)
     Route: 047
     Dates: start: 20140402
  8. CYSTEAMINE HYDROCHLORIDE [Suspect]
     Active Substance: CYSTEAMINE HYDROCHLORIDE
     Dosage: 4 GTT DROPS, Q6H (2 DROPS IN EACH EYE)
     Dates: start: 20140402
  9. FERROUS SULFATE [Concomitant]
     Active Substance: FERROUS SULFATE
     Indication: Vitamin supplementation
     Dosage: 20 GTT DROPS, QD (PER DAY)
  10. FERROUS SULFATE [Concomitant]
     Active Substance: FERROUS SULFATE
     Dosage: 20 GTT DROPS, QD (PER DAY)
     Route: 065
  11. FERROUS SULFATE [Concomitant]
     Active Substance: FERROUS SULFATE
     Dosage: 20 GTT DROPS, QD (PER DAY)
     Route: 065
  12. FERROUS SULFATE [Concomitant]
     Active Substance: FERROUS SULFATE
     Dosage: 20 GTT DROPS, QD (PER DAY)
  13. CALCITRIOL [Concomitant]
     Active Substance: CALCITRIOL
     Indication: Vitamin supplementation
     Dosage: 1 MICROGRAM, QD
  14. CALCITRIOL [Concomitant]
     Active Substance: CALCITRIOL
     Dosage: 1 MICROGRAM, QD
     Route: 065
  15. CALCITRIOL [Concomitant]
     Active Substance: CALCITRIOL
     Dosage: 1 MICROGRAM, QD
     Route: 065
  16. CALCITRIOL [Concomitant]
     Active Substance: CALCITRIOL
     Dosage: 1 MICROGRAM, QD
  17. ASCORBIC ACID [Concomitant]
     Active Substance: ASCORBIC ACID
     Indication: Vitamin supplementation
     Dosage: 20 GTT DROPS, QD (PER DAY)
  18. ASCORBIC ACID [Concomitant]
     Active Substance: ASCORBIC ACID
     Dosage: 20 GTT DROPS, QD (PER DAY)
     Route: 065
  19. ASCORBIC ACID [Concomitant]
     Active Substance: ASCORBIC ACID
     Dosage: 20 GTT DROPS, QD (PER DAY)
     Route: 065
  20. ASCORBIC ACID [Concomitant]
     Active Substance: ASCORBIC ACID
     Dosage: 20 GTT DROPS, QD (PER DAY)
  21. OMEPRAZOLE [Concomitant]
     Active Substance: OMEPRAZOLE
     Indication: Epigastric discomfort
     Dosage: 10 MILLIGRAM, QD (PER DAY)
  22. OMEPRAZOLE [Concomitant]
     Active Substance: OMEPRAZOLE
     Dosage: 10 MILLIGRAM, QD (PER DAY)
     Route: 065
  23. OMEPRAZOLE [Concomitant]
     Active Substance: OMEPRAZOLE
     Dosage: 10 MILLIGRAM, QD (PER DAY)
     Route: 065
  24. OMEPRAZOLE [Concomitant]
     Active Substance: OMEPRAZOLE
     Dosage: 10 MILLIGRAM, QD (PER DAY)

REACTIONS (5)
  - Cardio-respiratory arrest [Recovering/Resolving]
  - Dyspnoea [Recovering/Resolving]
  - Pulmonary oedema [Recovering/Resolving]
  - COVID-19 [Recovering/Resolving]
  - Prescribed overdose [Unknown]

NARRATIVE: CASE EVENT DATE: 20140402
